FAERS Safety Report 23707929 (Version 1)
Quarter: 2024Q1

REPORT INFORMATION
  Report Type: Spontaneous
  Country: US (occurrence: None)
  Receive Date: 20240331
  Receipt Date: 20240331
  Transmission Date: 20240412
  Serious: No
  Sender: FDA-Public Use
  Company Number: None

PATIENT
  Age: 61 Year
  Sex: Male
  Weight: 108 kg

DRUGS (4)
  1. HERBALS\HYALURONIC ACID [Suspect]
     Active Substance: HERBALS\HYALURONIC ACID
     Indication: Acrochordon excision
     Dosage: 2 BOTTLES DAILY TOPICAL
     Route: 061
     Dates: start: 20240228, end: 20240301
  2. AMLODIPINE [Concomitant]
     Active Substance: AMLODIPINE BESYLATE
  3. ACETAMINOPHEN [Concomitant]
     Active Substance: ACETAMINOPHEN
  4. IBPROFIN [Concomitant]

REACTIONS (3)
  - Toxicity to various agents [None]
  - Scar [None]
  - Chemical burn of skin [None]

NARRATIVE: CASE EVENT DATE: 20240228
